FAERS Safety Report 5423054-2 (Version None)
Quarter: 2007Q3

REPORT INFORMATION
  Report Type: 
  Country: None (occurrence: None)
  Receive Date: 20070821
  Receipt Date: 20070730
  Transmission Date: 20080115
  Serious: No
  Sender: FDA-Public Use
  Company Number: 2007US001526

PATIENT
  Sex: Female

DRUGS (1)
  1. PROGRAF [Suspect]
     Indication: KIDNEY TRANSPLANT REJECTION
     Dosage: 3 MG, BID
     Dates: start: 20050427, end: 20070608

REACTIONS (3)
  - GRAFT THROMBOSIS [None]
  - RENAL FAILURE [None]
  - TRANSPLANT FAILURE [None]
